FAERS Safety Report 9227707 (Version 1)
Quarter: 2013Q1

REPORT INFORMATION
  Report Type: Spontaneous
  Country: US (occurrence: None)
  Receive Date: 20121012
  Receipt Date: 20121012
  Transmission Date: 20140127
  Serious: Yes (Other)
  Sender: FDA-Public Use
  Company Number: 1000023652

PATIENT
  Age: 42 Year
  Sex: Female

DRUGS (8)
  1. LEXAPRO [Suspect]
     Indication: ANXIETY
     Route: 048
     Dates: start: 20100916, end: 201103
  2. LEXAPRO [Suspect]
     Indication: DEPRESSION
     Route: 048
     Dates: start: 20100916, end: 201103
  3. LEXAPRO [Suspect]
     Indication: ANXIETY
     Dosage: STOPPED
     Route: 048
     Dates: start: 201103
  4. LEXAPRO [Suspect]
     Indication: DEPRESSION
     Dosage: STOPPED
     Route: 048
     Dates: start: 201103
  5. LEXAPRO [Suspect]
     Indication: ANXIETY
     Route: 048
  6. LEXAPRO [Suspect]
     Indication: DEPRESSION
     Route: 048
  7. LEXAPRO [Suspect]
     Indication: ANXIETY
     Route: 048
     Dates: start: 20110903, end: 20110907
  8. LEXAPRO [Suspect]
     Indication: DEPRESSION
     Route: 048
     Dates: start: 20110903, end: 20110907

REACTIONS (4)
  - Suicidal ideation [None]
  - Depression [None]
  - Anxiety [None]
  - Mood swings [None]
